FAERS Safety Report 17280204 (Version 1)
Quarter: 2020Q1

REPORT INFORMATION
  Report Type: Spontaneous
  Country: TR (occurrence: TR)
  Receive Date: 20200117
  Receipt Date: 20200117
  Transmission Date: 20200409
  Serious: Yes (Other)
  Sender: FDA-Public Use
  Company Number: TR-ROCHE-2520724

PATIENT
  Age: 58 Year
  Sex: Male

DRUGS (4)
  1. CLONAZEPAM. [Suspect]
     Active Substance: CLONAZEPAM
     Indication: OPSOCLONUS MYOCLONUS
     Dosage: GRADUALLY INCREASED UP TO 10 MG/DAILY
     Route: 042
  2. CISPLATIN. [Concomitant]
     Active Substance: CISPLATIN
     Dosage: DAY 1
     Route: 065
  3. METHYLPREDNISOLONE. [Concomitant]
     Active Substance: METHYLPREDNISOLONE
     Route: 042
  4. ETOPOSIDE. [Concomitant]
     Active Substance: ETOPOSIDE
     Route: 065

REACTIONS (2)
  - Respiratory distress [Unknown]
  - Drug ineffective [Unknown]
